FAERS Safety Report 20029177 (Version 1)
Quarter: 2021Q4

REPORT INFORMATION
  Report Type: Report from Study
  Country: EG (occurrence: EG)
  Receive Date: 20211103
  Receipt Date: 20211103
  Transmission Date: 20220303
  Serious: Yes (Hospitalization, Other)
  Sender: FDA-Public Use
  Company Number: EG-NOVARTISPH-NVSC2021EG250185

PATIENT
  Sex: Female

DRUGS (1)
  1. GLIVEC [Suspect]
     Active Substance: IMATINIB MESYLATE
     Indication: Chronic myeloid leukaemia
     Dosage: 1 DF, QD
     Route: 048

REACTIONS (5)
  - Fall [Recovered/Resolved]
  - Thrombosis [Recovered/Resolved]
  - Speech disorder [Recovered/Resolved]
  - Fear [Recovered/Resolved]
  - Movement disorder [Not Recovered/Not Resolved]
